FAERS Safety Report 9034533 (Version 2)
Quarter: 2013Q1

REPORT INFORMATION
  Report Type: Spontaneous
  Country: US (occurrence: None)
  Receive Date: 20130115
  Receipt Date: 20130206
  Transmission Date: 20140127
  Serious: Yes (Hospitalization)
  Sender: FDA-Public Use
  Company Number: JPI-P-028802

PATIENT
  Age: 75 Year
  Sex: Female

DRUGS (1)
  1. XYREM (500 MILLIGRAM/MILLILITERS, SHAMPOO) (SODIUM OXYBATE) [Suspect]
     Indication: CATAPLEXY
     Dosage: (2.25 GM,2 IN 1 D)
     Route: 048
     Dates: start: 20030804

REACTIONS (9)
  - Blood potassium decreased [None]
  - Dizziness [None]
  - Blood glucose decreased [None]
  - Dehydration [None]
  - Nausea [None]
  - Renal disorder [None]
  - Breast cancer female [None]
  - Pneumonia [None]
  - Liver disorder [None]
